FAERS Safety Report 7153587-2 (Version None)
Quarter: 2010Q4

REPORT INFORMATION
  Report Type: 
  Country: None (occurrence: None)
  Receive Date: 20101208
  Receipt Date: 20101208
  Transmission Date: 20110411
  Serious: Yes (Life-Threatening)
  Sender: FDA-Public Use
  Company Number: None

PATIENT
  Sex: Female
  Weight: 60.5 kg

DRUGS (5)
  1. RANEXA [Suspect]
     Indication: ANGINA PECTORIS
     Dosage: 500 MG BID ORALLY
     Route: 048
     Dates: start: 20101031, end: 20101107
  2. DEXAMETHASONE [Concomitant]
  3. SIMVASTATIN [Concomitant]
  4. FAMOTIDINE [Concomitant]
  5. ALPRAZOLAM [Concomitant]

REACTIONS (1)
  - PNEUMONITIS [None]
